FAERS Safety Report 5444421-7 (Version None)
Quarter: 2007Q3

REPORT INFORMATION
  Report Type: 
  Country: None (occurrence: None)
  Receive Date: 20070904
  Receipt Date: 20070904
  Transmission Date: 20080115
  Serious: Yes (Hospitalization)
  Sender: FDA-Public Use
  Company Number: None

PATIENT
  Age: 53 Year
  Sex: Female
  Weight: 80.2 kg

DRUGS (6)
  1. LITHIUM CARBONATE [Suspect]
     Indication: BIPOLAR DISORDER
     Dosage: 600 MG TWICE DAILY PO
     Route: 048
  2. LEVOXYL [Concomitant]
  3. SIMVASTATIN [Concomitant]
  4. DEPAKOTE [Concomitant]
  5. SEROQUEL [Concomitant]
  6. PROLIXIN [Concomitant]

REACTIONS (4)
  - ABASIA [None]
  - CONFUSIONAL STATE [None]
  - ELECTROCARDIOGRAM T WAVE INVERSION [None]
  - THERAPEUTIC AGENT TOXICITY [None]
